FAERS Safety Report 13106956 (Version 1)
Quarter: 2017Q1

REPORT INFORMATION
  Report Type: Report from Study
  Country: PL (occurrence: PL)
  Receive Date: 20170111
  Receipt Date: 20170111
  Transmission Date: 20170428
  Serious: Yes (Hospitalization)
  Sender: FDA-Public Use
  Company Number: PL-BIOGEN-2015BI131529

PATIENT
  Age: 40 Year
  Sex: Female
  Weight: 60 kg

DRUGS (13)
  1. CLATRA [Concomitant]
     Indication: SKIN DISORDER
     Route: 048
     Dates: start: 20150614, end: 20150826
  2. EZTOM CREAM (MOMETASONE FUROATE) [Concomitant]
     Indication: ALOPECIA
  3. EMOLIUM [Concomitant]
     Indication: SKIN DISORDER
     Route: 061
     Dates: start: 20150614, end: 20150826
  4. PIROLAM [Concomitant]
     Indication: SKIN DISORDER
     Route: 061
     Dates: start: 20150614, end: 20150826
  5. HC-UREA 10% [Concomitant]
     Indication: DRY SKIN
     Dates: start: 20150826
  6. DOPPELHERZ [Concomitant]
     Active Substance: DIETARY SUPPLEMENT
     Indication: SUPPLEMENTATION THERAPY
     Route: 048
     Dates: start: 201511
  7. DOXYCYLLINUM [Concomitant]
     Indication: ALOPECIA
     Route: 048
     Dates: start: 20150918, end: 20151108
  8. EZTOM CREAM (MOMETASONE FUROATE) [Concomitant]
     Indication: SKIN DISORDER
     Route: 061
     Dates: start: 20150614, end: 20150826
  9. PIROLAM [Concomitant]
     Indication: ALOPECIA
  10. CLATRA [Concomitant]
     Indication: ALOPECIA
  11. EMOLIUM [Concomitant]
     Indication: ALOPECIA
  12. ENTEROL [Concomitant]
     Indication: SUPPLEMENTATION THERAPY
     Route: 048
     Dates: start: 20150919, end: 20151108
  13. DACLIZUMAB HYP [Suspect]
     Active Substance: DACLIZUMAB
     Indication: MULTIPLE SCLEROSIS
     Route: 058
     Dates: start: 20140203, end: 20150626

REACTIONS (1)
  - Alopecia scarring [Recovered/Resolved]

NARRATIVE: CASE EVENT DATE: 20150826
